FAERS Safety Report 9300530 (Version 3)
Quarter: 2013Q2

REPORT INFORMATION
  Report Type: Spontaneous
  Country: DK (occurrence: JP)
  Receive Date: 20130521
  Receipt Date: 20130614
  Transmission Date: 20140414
  Serious: Yes (Hospitalization)
  Sender: FDA-Public Use
  Company Number: JP-FRI-1000045210

PATIENT
  Age: 41 Year
  Sex: Male
  Weight: 60 kg

DRUGS (6)
  1. LEXAPRO [Suspect]
     Indication: DEPRESSION
     Dosage: OVERDOSE: 5 TABLETS
     Route: 048
     Dates: start: 20130508
  2. DEPAKENE [Suspect]
     Indication: DEPRESSION
     Dosage: OVERDOSE: 13 TABLET OF SODIUM VALPROATE 200 MG
     Route: 048
     Dates: start: 20130508
  3. FLUNITRAZEPAM [Suspect]
     Dosage: 3 MG
     Route: 048
  4. BIOFERMIN [Concomitant]
     Dosage: 4 DF
     Route: 048
  5. PRIMPERAN [Concomitant]
     Dosage: 10 MG
     Route: 048
  6. STOMACHICS AND DIGESTIVES [Concomitant]
     Route: 050

REACTIONS (5)
  - Depressed level of consciousness [Unknown]
  - Peripheral coldness [Unknown]
  - Dysarthria [Unknown]
  - Toxicity to various agents [Recovering/Resolving]
  - Overdose [Unknown]
